FAERS Safety Report 11318999 (Version 3)
Quarter: 2015Q4

REPORT INFORMATION
  Report Type: Report from Study
  Country: US (occurrence: US)
  Receive Date: 20150729
  Receipt Date: 20151021
  Transmission Date: 20160304
  Serious: No
  Sender: FDA-Public Use
  Company Number: US-AMGEN-USASP2015076321

PATIENT
  Age: 57 Year
  Sex: Female

DRUGS (2)
  1. METHOTREXATE (METHOTREXATE SODIUM) [Concomitant]
     Active Substance: METHOTREXATE SODIUM
     Dosage: UNK
  2. ENBREL [Suspect]
     Active Substance: ETANERCEPT
     Indication: RHEUMATOID ARTHRITIS
     Dosage: 50 MG, QWK
     Route: 065
     Dates: start: 2011

REACTIONS (14)
  - Injection site erythema [Unknown]
  - Pain [Unknown]
  - Back pain [Unknown]
  - Tooth fracture [Unknown]
  - Injection site reaction [Unknown]
  - Nerve block [Unknown]
  - Bedridden [Unknown]
  - Memory impairment [Unknown]
  - Injection site swelling [Unknown]
  - Mobility decreased [Unknown]
  - Drug dose omission [Unknown]
  - Arthralgia [Unknown]
  - Musculoskeletal pain [Unknown]
  - Injection site bruising [Unknown]

NARRATIVE: CASE EVENT DATE: 2015
